FAERS Safety Report 7792846-7 (Version None)
Quarter: 2011Q4

REPORT INFORMATION
  Report Type: 
  Country: None (occurrence: None)
  Receive Date: 20111003
  Receipt Date: 20110921
  Transmission Date: 20120403
  Serious: Yes (Life-Threatening, Hospitalization)
  Sender: FDA-Public Use
  Company Number: JP-GLAXOSMITHKLINE-B0743070A

PATIENT
  Sex: Female
  Weight: 50.1 kg

DRUGS (12)
  1. CLARITIN [Concomitant]
     Indication: PRURITUS
     Route: 048
     Dates: end: 20110825
  2. MAGMITT [Concomitant]
     Indication: CONSTIPATION
     Route: 048
  3. METHYLCOBAL [Concomitant]
     Indication: NEUROPATHY PERIPHERAL
     Route: 048
  4. TYKERB [Suspect]
     Indication: BREAST CANCER
     Dosage: 1250MG PER DAY
     Route: 048
     Dates: start: 20110804, end: 20110811
  5. POSTERISAN [Concomitant]
     Indication: PERIPROCTITIS
     Dates: end: 20110825
  6. CAPECITABINE [Suspect]
     Indication: BREAST CANCER
     Dosage: 3000MG PER DAY
     Route: 048
     Dates: start: 20110804, end: 20110812
  7. LANSOPRAZOLE [Concomitant]
     Indication: GASTROOESOPHAGEAL REFLUX DISEASE
     Route: 048
  8. GASMOTIN [Concomitant]
     Indication: GASTRITIS
     Route: 048
  9. ZOLPIDEM [Concomitant]
     Indication: INSOMNIA
     Route: 048
  10. ZETIA [Concomitant]
     Indication: HYPERCHOLESTEROLAEMIA
     Route: 048
     Dates: end: 20110825
  11. MOHRUS TAPE [Concomitant]
     Indication: BACK PAIN
     Dates: end: 20110825
  12. LIPITOR [Concomitant]
     Indication: HYPERCHOLESTEROLAEMIA
     Route: 048
     Dates: start: 20110826

REACTIONS (3)
  - CARDIAC FAILURE [None]
  - ACUTE MYOCARDIAL INFARCTION [None]
  - HYPOTENSION [None]
